FAERS Safety Report 5880560-4 (Version None)
Quarter: 2008Q3

REPORT INFORMATION
  Report Type: 
  Country: None (occurrence: None)
  Receive Date: 20080912
  Receipt Date: 20080602
  Transmission Date: 20090109
  Serious: No
  Sender: FDA-Public Use
  Company Number: US-ABBOTT-08P-163-0454807-00

PATIENT
  Sex: Male
  Weight: 104.42 kg

DRUGS (20)
  1. HUMIRA [Suspect]
     Indication: CROHN'S DISEASE
     Route: 058
     Dates: start: 20070101
  2. ALBUTEROL [Concomitant]
     Indication: ASTHMA
     Dosage: INHALED EVERY 12 HOURS OR AS NEEDED
     Route: 055
  3. LORTAB [Concomitant]
     Indication: PAIN
     Route: 048
  4. SILDENAFIL CITRATE [Concomitant]
     Indication: ERECTILE DYSFUNCTION
     Route: 048
  5. MONTELUKAST SODIUM [Concomitant]
     Indication: ASTHMA
     Route: 048
  6. SIMVASTATIN [Concomitant]
     Indication: ENZYME INHIBITION
     Route: 048
     Dates: start: 20080101
  7. PREGABALIN [Concomitant]
     Indication: DRUG USE FOR UNKNOWN INDICATION
     Route: 048
  8. TRIAMCINOLONE ACETONIDE [Concomitant]
     Indication: ASTHMA
     Route: 045
     Dates: start: 20080101
  9. SERETIDE [Concomitant]
     Indication: ASTHMA
     Route: 055
     Dates: start: 20080101
  10. VALSARTAN [Concomitant]
     Indication: HYPERTENSION
     Route: 048
  11. VALSARTAN [Concomitant]
     Indication: CARDIAC FAILURE
  12. CARVEDILOL [Concomitant]
     Indication: HYPERTENSION
     Route: 048
  13. CARVEDILOL [Concomitant]
     Indication: CARDIAC FAILURE
  14. BUPROPION HCL [Concomitant]
     Indication: DEPRESSION
     Route: 048
  15. BUSPIRONE HCL [Concomitant]
     Indication: ANXIETY
     Route: 048
     Dates: start: 20080101
  16. TIOTROPIUM BROMIDE [Concomitant]
     Indication: ASTHMA
     Route: 055
     Dates: start: 20080101
  17. MODAFINIL [Concomitant]
     Indication: SLEEP APNOEA SYNDROME
     Route: 048
  18. PREDNISONE TAB [Concomitant]
     Indication: RESPIRATORY DISORDER
     Route: 048
  19. BUMETANIDE [Concomitant]
     Indication: DIURETIC THERAPY
     Route: 048
  20. PANTOPRAZDE [Concomitant]
     Indication: DYSPEPSIA
     Route: 048

REACTIONS (1)
  - INJECTION SITE PAIN [None]
